FAERS Safety Report 10047034 (Version 1)
Quarter: 2014Q1

REPORT INFORMATION
  Report Type: Spontaneous
  Country: US (occurrence: None)
  Receive Date: 20140328
  Receipt Date: 20140328
  Transmission Date: 20141002
  Serious: Yes (Hospitalization)
  Sender: FDA-Public Use
  Company Number: None

PATIENT
  Age: 88 Year
  Sex: Female
  Weight: 57.61 kg

DRUGS (8)
  1. DECITABINE [Suspect]
     Indication: ACUTE MYELOID LEUKAEMIA
     Dosage: 20 MG/M2; QDX5; 28 DAY CYCLES
     Dates: start: 20140207
  2. ACYCLOVIR [Concomitant]
  3. ATORVASTATIN CALCIUM [Concomitant]
  4. BENZONATATE [Concomitant]
  5. CIPROFLOXACIN HCI [Concomitant]
  6. ENOXAPARIN SODIUM [Concomitant]
  7. FAMOTODINE [Concomitant]
  8. LEVOTHYROXINE SODIUM [Concomitant]

REACTIONS (3)
  - Cough [None]
  - Oropharyngeal pain [None]
  - Bacteraemia [None]
